FAERS Safety Report 9451477 (Version 1)
Quarter: 2013Q3

REPORT INFORMATION
  Report Type: Report from Study
  Country: US (occurrence: US)
  Receive Date: 20130810
  Receipt Date: 20130810
  Transmission Date: 20140515
  Serious: Yes (Other)
  Sender: FDA-Public Use
  Company Number: US-ROCHE-1255700

PATIENT
  Sex: Female
  Weight: 72.64 kg

DRUGS (1)
  1. XOLAIR [Suspect]
     Indication: ASTHMA
     Route: 065

REACTIONS (3)
  - Tachycardia [Unknown]
  - Asthma [Unknown]
  - Myocardial infarction [Unknown]
